FAERS Safety Report 26141409 (Version 1)
Quarter: 2025Q4

REPORT INFORMATION
  Report Type: Spontaneous
  Country: US (occurrence: US)
  Receive Date: 20251210
  Receipt Date: 20251210
  Transmission Date: 20260119
  Serious: No
  Sender: MISSION PHARMACAL COMPANY
  Company Number: US-Mission Pharmacal Company-2190302

PATIENT
  Age: 62 Year
  Sex: Male

DRUGS (11)
  1. POTASSIUM CITRATE [Suspect]
     Active Substance: POTASSIUM CITRATE
     Indication: Cystinuria
  2. THIOLA [Concomitant]
     Active Substance: TIOPRONIN
     Dates: start: 20150926
  3. FISH OIL [Concomitant]
     Active Substance: FISH OIL
  4. COLCHICINE [Concomitant]
     Active Substance: COLCHICINE
  5. ASPIRIN [Concomitant]
     Active Substance: ASPIRIN
  6. ULORIC [Concomitant]
     Active Substance: FEBUXOSTAT
  7. VALSARTAN [Concomitant]
     Active Substance: VALSARTAN
  8. ALPRAZOLAM [Concomitant]
     Active Substance: ALPRAZOLAM
  9. ATORVASTATIN [Concomitant]
     Active Substance: ATORVASTATIN
  10. CARVEDILOL [Concomitant]
     Active Substance: CARVEDILOL
  11. AMLODIPINE [Concomitant]
     Active Substance: AMLODIPINE BESYLATE

REACTIONS (2)
  - Hyperkalaemia [Unknown]
  - Hypercalcaemia [Unknown]
